FAERS Safety Report 5354602-9 (Version None)
Quarter: 2007Q2

REPORT INFORMATION
  Report Type: 
  Country: None (occurrence: None)
  Receive Date: 20070611
  Receipt Date: 20070529
  Transmission Date: 20071010
  Serious: Yes (Hospitalization)
  Sender: FDA-Public Use
  Company Number: 2007BI011767

PATIENT
  Age: 48 Year
  Sex: Male

DRUGS (2)
  1. AVONEX [Suspect]
     Indication: MULTIPLE SCLEROSIS
     Dosage: 30 UG;QW;IM
     Route: 030
     Dates: start: 19980202
  2. ANTIDEPRESSANT [Concomitant]

REACTIONS (4)
  - CEREBRAL THROMBOSIS [None]
  - MASS [None]
  - SKIN BURNING SENSATION [None]
  - TRANSIENT ISCHAEMIC ATTACK [None]
